FAERS Safety Report 20382920 (Version 3)
Quarter: 2022Q1

REPORT INFORMATION
  Report Type: Report from Study
  Country: US (occurrence: US)
  Receive Date: 20220127
  Receipt Date: 20220307
  Transmission Date: 20220423
  Serious: Yes (Other)
  Sender: FDA-Public Use
  Company Number: US-GW PHARMA-202201USGW00004

PATIENT
  Age: 50 Year
  Sex: Male

DRUGS (5)
  1. EPIDIOLEX [Suspect]
     Active Substance: CANNABIDIOL
     Indication: Seizure
     Dosage: 300 MILLIGRAM, BID
     Route: 048
     Dates: start: 202112
  2. EPIDIOLEX [Suspect]
     Active Substance: CANNABIDIOL
     Indication: Partial seizures
     Dosage: 200 MILLIGRAM, BID
     Route: 048
  3. EPIDIOLEX [Suspect]
     Active Substance: CANNABIDIOL
     Indication: Partial seizures
     Dosage: 200 UNK
     Route: 048
     Dates: start: 202112
  4. DILANTIN [Concomitant]
     Active Substance: PHENYTOIN
     Indication: Seizure
     Dosage: 350 MILLIGRAM, QD (2 PILLS AT NIGHT AND 1 PILL IN THE MORNING)
     Route: 065
  5. PHENOBARBITAL [Concomitant]
     Active Substance: PHENOBARBITAL
     Indication: Seizure
     Dosage: 2 DOSAGE FORM, BID
     Route: 065

REACTIONS (7)
  - Pain in extremity [Unknown]
  - Seizure [Recovered/Resolved]
  - Seizure [Unknown]
  - Dizziness [Unknown]
  - Balance disorder [Unknown]
  - Somnolence [Unknown]
  - Drug ineffective [Unknown]

NARRATIVE: CASE EVENT DATE: 20211201
